FAERS Safety Report 5104495-X (Version None)
Quarter: 2006Q3

REPORT INFORMATION
  Report Type: 
  Country: None (occurrence: None)
  Receive Date: 20060911
  Receipt Date: 20060821
  Transmission Date: 20061208
  Serious: Yes (Hospitalization)
  Sender: FDA-Public Use
  Company Number: ES200608006869

PATIENT
  Age: 61 Year
  Sex: Male

DRUGS (2)
  1. GEMZAR [Suspect]
     Indication: BRONCHIAL CARCINOMA
     Dosage: 1000 MG/M2, VAGINAL
     Route: 067
  2. TAXOTERE [Concomitant]

REACTIONS (2)
  - CRYPTOGENIC ORGANISING PNEUMONIA [None]
  - RESPIRATORY FAILURE [None]
